FAERS Safety Report 24023352 (Version 2)
Quarter: 2024Q2

REPORT INFORMATION
  Report Type: Report from Study
  Country: US (occurrence: US)
  Receive Date: 20240627
  Receipt Date: 20240627
  Transmission Date: 20240716
  Serious: No
  Sender: FDA-Public Use
  Company Number: US-ROCHE-3561705

PATIENT
  Age: 59 Year
  Sex: Male

DRUGS (2)
  1. VABYSMO [Suspect]
     Active Substance: FARICIMAB\FARICIMAB-SVOA
     Indication: Retinal neovascularisation
     Dosage: IN LEFT EYE
     Route: 050
     Dates: start: 20240514
  2. AVASTIN [Suspect]
     Active Substance: BEVACIZUMAB
     Indication: Retinal neovascularisation
     Route: 065
     Dates: start: 20240124

REACTIONS (3)
  - Product prescribing error [Unknown]
  - Off label use [Unknown]
  - Eye disorder [Unknown]
